FAERS Safety Report 6106018-5 (Version None)
Quarter: 2009Q1

REPORT INFORMATION
  Report Type: 
  Country: None (occurrence: None)
  Receive Date: 20090306
  Receipt Date: 20090224
  Transmission Date: 20090719
  Serious: Yes (Other)
  Sender: FDA-Public Use
  Company Number: AU-ROCHE-607803

PATIENT
  Sex: Male

DRUGS (4)
  1. ISOTRETINOIN [Suspect]
     Indication: ACNE
     Route: 065
     Dates: start: 20080920
  2. ISOTRETINOIN [Suspect]
     Route: 065
     Dates: start: 20081121
  3. ISOTRETINOIN [Suspect]
     Route: 065
     Dates: start: 20081212
  4. ISOTRETINOIN [Suspect]
     Dosage: DOSE REDUCED AS PATIENT STILL HAS STONES
     Route: 065

REACTIONS (4)
  - CALCULUS URINARY [None]
  - HYPERAESTHESIA [None]
  - IMPAIRED HEALING [None]
  - NEPHROLITHIASIS [None]
